FAERS Safety Report 4328127-3 (Version None)
Quarter: 2004Q1

REPORT INFORMATION
  Report Type: 
  Country: None (occurrence: None)
  Receive Date: 20040325
  Receipt Date: 20040218
  Transmission Date: 20041129
  Serious: Yes (Hospitalization)
  Sender: FDA-Public Use
  Company Number: 192791

PATIENT
  Age: 47 Year
  Sex: Female
  Weight: 53.978 kg

DRUGS (12)
  1. AVONEX [Suspect]
     Indication: MULTIPLE SCLEROSIS
     Dosage: 30 MCG QW IM
     Route: 030
     Dates: start: 19970101, end: 20000101
  2. AVONEX [Suspect]
     Indication: MULTIPLE SCLEROSIS
     Dosage: 30 MCG Q4D IM
     Route: 030
     Dates: start: 20000101, end: 20030801
  3. AVONEX [Suspect]
     Indication: MULTIPLE SCLEROSIS
     Dosage: 30 MCG Q4D IM
     Route: 030
     Dates: start: 20030801
  4. PROZAC [Concomitant]
  5. IMMUNE GLOBULIN INTRAVENOUS (HUMAN) [Concomitant]
  6. BACLOFEN [Concomitant]
  7. ADDERALL 10 [Concomitant]
  8. HYDROCODONE [Concomitant]
  9. SENOKOT [Concomitant]
  10. SKELAXIN [Concomitant]
  11. RELPAX [Concomitant]
  12. ZONEGRAN [Concomitant]

REACTIONS (4)
  - CARDIAC FAILURE CONGESTIVE [None]
  - HYPERGLYCAEMIA [None]
  - PHARYNGOLARYNGEAL PAIN [None]
  - URINARY TRACT INFECTION [None]
